FAERS Safety Report 15284721 (Version 1)
Quarter: 2018Q3

REPORT INFORMATION
  Report Type: Report from Study
  Country: GB (occurrence: GB)
  Receive Date: 20180816
  Receipt Date: 20180816
  Transmission Date: 20181010
  Serious: Yes (Hospitalization, Other)
  Sender: FDA-Public Use
  Company Number: GB-JNJFOC-20180808502

PATIENT
  Age: 54 Year
  Sex: Female
  Weight: 99.4 kg

DRUGS (14)
  1. CIPROFLOXACIN. [Concomitant]
     Active Substance: CIPROFLOXACIN
     Route: 065
     Dates: start: 20171004, end: 20171025
  2. FEBUXOSTAT. [Concomitant]
     Active Substance: FEBUXOSTAT
     Route: 065
     Dates: start: 20180220
  3. STELARA [Suspect]
     Active Substance: USTEKINUMAB
     Indication: PSORIASIS
     Route: 058
     Dates: start: 20090731, end: 20150901
  4. IRBESARTAN. [Concomitant]
     Active Substance: IRBESARTAN
     Route: 065
     Dates: start: 20080714
  5. ATORVASTATIN [Concomitant]
     Active Substance: ATORVASTATIN
     Route: 065
     Dates: start: 20120815
  6. FLUCLOXACILLIN [Concomitant]
     Active Substance: FLUCLOXACILLIN
     Route: 065
     Dates: start: 20171001, end: 20171003
  7. COLCHICINE. [Concomitant]
     Active Substance: COLCHICINE
     Route: 065
     Dates: start: 20180213
  8. TACROLIMUS. [Concomitant]
     Active Substance: TACROLIMUS
     Route: 065
     Dates: start: 20151108
  9. STELARA [Suspect]
     Active Substance: USTEKINUMAB
     Indication: PSORIASIS
     Route: 058
     Dates: start: 20160823
  10. BISOPROLOL [Concomitant]
     Active Substance: BISOPROLOL
     Route: 065
     Dates: start: 20120709
  11. LISINOPRIL. [Concomitant]
     Active Substance: LISINOPRIL
     Route: 065
  12. PREDNISOLONE. [Concomitant]
     Active Substance: PREDNISOLONE
     Route: 065
     Dates: start: 20160309
  13. SODIUM BICARBONATE. [Concomitant]
     Active Substance: SODIUM BICARBONATE
     Route: 065
     Dates: start: 20080714
  14. OXYCODONE [Concomitant]
     Active Substance: OXYCODONE
     Route: 065
     Dates: start: 20180220

REACTIONS (4)
  - Acute kidney injury [Recovered/Resolved]
  - Arthritis infective [Unknown]
  - Infection [Unknown]
  - Crystal arthropathy [Unknown]

NARRATIVE: CASE EVENT DATE: 20180201
